FAERS Safety Report 17875153 (Version 1)
Quarter: 2020Q2

REPORT INFORMATION
  Report Type: Spontaneous
  Country: US (occurrence: US)
  Receive Date: 20200608
  Receipt Date: 20200608
  Transmission Date: 20200714
  Serious: No
  Sender: FDA-Public Use
  Company Number: None

PATIENT
  Age: 73 Year
  Sex: Male
  Weight: 147.42 kg

DRUGS (3)
  1. OTEZLA [Suspect]
     Active Substance: APREMILAST
     Indication: POLYARTHRITIS
     Dosage: OTHER DOSE:TAKE 1 TABLET; AS DIRECTED?
     Route: 048
     Dates: start: 201907
  2. OTEZLA [Suspect]
     Active Substance: APREMILAST
     Indication: PSORIASIS
     Dosage: OTHER DOSE:TAKE 1 TABLET; AS DIRECTED?
     Route: 048
     Dates: start: 201907
  3. OTEZLA [Suspect]
     Active Substance: APREMILAST
     Indication: PSORIATIC ARTHROPATHY
     Dosage: OTHER DOSE:TAKE 1 TABLET; AS DIRECTED?
     Route: 048
     Dates: start: 201907

REACTIONS (1)
  - Hospitalisation [None]
